FAERS Safety Report 21314693 (Version 1)
Quarter: 2022Q3

REPORT INFORMATION
  Report Type: Spontaneous
  Country: US (occurrence: None)
  Receive Date: 20220909
  Receipt Date: 20220909
  Transmission Date: 20221027
  Serious: No
  Sender: FDA-Public Use
  Company Number: US-ARIS GLOBAL-202110-1906

PATIENT
  Sex: Female

DRUGS (21)
  1. OXERVATE [Suspect]
     Active Substance: CENEGERMIN-BKBJ
     Indication: Neurotrophic keratopathy
     Route: 047
     Dates: start: 20211014
  2. SYNTHROID [Concomitant]
     Active Substance: LEVOTHYROXINE SODIUM
  3. RETAINE [Concomitant]
     Active Substance: HYPROMELLOSE 2910 (4000 MPA.S)
     Dosage: 0.5%-0.5%
  4. PRISTIQ EXTENDED-RELEASE [Concomitant]
     Active Substance: DESVENLAFAXINE SUCCINATE
     Dosage: EXTEND RELEASE TABLETS 24 H.
  5. PROBIOTIC 10 B CELL [Concomitant]
  6. MAGNESIUM [Concomitant]
     Active Substance: MAGNESIUM
  7. FISH OIL [Concomitant]
     Active Substance: FISH OIL
     Dosage: 100-150 MG
  8. VIT D-400 [Concomitant]
  9. RIZATRIPTAN [Concomitant]
     Active Substance: RIZATRIPTAN
  10. XYZAL [Concomitant]
     Active Substance: LEVOCETIRIZINE DIHYDROCHLORIDE
  11. ESTRADIOL [Concomitant]
     Active Substance: ESTRADIOL
  12. IBUPROFEN [Concomitant]
     Active Substance: IBUPROFEN
  13. METOPROLOL SUCCINATE [Concomitant]
     Active Substance: METOPROLOL SUCCINATE
  14. GENTEAL TEARS [Concomitant]
     Active Substance: DEXTRAN 70\HYPROMELLOSE 2910 (4000 MPA.S)
     Dosage: 0.1% - 0-3 %
  15. REFRESH CLASSIC [Concomitant]
     Active Substance: POLYVINYL ALCOHOL\POVIDONE
  16. PRALUENT [Concomitant]
     Active Substance: ALIROCUMAB
     Dosage: PEN.
  17. ALLOPURINOL [Concomitant]
     Active Substance: ALLOPURINOL
  18. ACYCLOVIR [Concomitant]
     Active Substance: ACYCLOVIR
  19. METFORMIN HYDROCHLORIDE [Concomitant]
     Active Substance: METFORMIN HYDROCHLORIDE
     Dosage: EXTEND RELEASE, GASTRIC
  20. LOSARTAN POTASSIUM [Concomitant]
     Active Substance: LOSARTAN POTASSIUM
  21. LIOTHYRONINE SODIUM [Concomitant]
     Active Substance: LIOTHYRONINE SODIUM

REACTIONS (1)
  - Eye pain [Not Recovered/Not Resolved]
